FAERS Safety Report 6309700-X (Version None)
Quarter: 2009Q3

REPORT INFORMATION
  Report Type: 
  Country: None (occurrence: None)
  Receive Date: 20090814
  Receipt Date: 20090812
  Transmission Date: 20100115
  Serious: Yes (Death)
  Sender: FDA-Public Use
  Company Number: PHEH2008US11601

PATIENT
  Sex: Female

DRUGS (7)
  1. GLEEVEC [Suspect]
     Indication: CHRONIC MYELOID LEUKAEMIA
     Dosage: 400 MG, QD
     Route: 048
  2. GLEEVEC [Suspect]
     Dosage: 300 MG, UNK
  3. ASPIRIN [Concomitant]
     Indication: AORTIC VALVE STENOSIS
     Dosage: 325 MG, QD
     Route: 048
  4. BENADRYL ^ACHE^ [Concomitant]
     Indication: SLEEP DISORDER
     Dosage: 25 MG, QHS
     Route: 048
  5. CLARITIN [Concomitant]
     Indication: HYPERSENSITIVITY
     Dosage: 10 MG 2 QD
     Route: 048
  6. COZAAR [Concomitant]
     Indication: ATRIAL FIBRILLATION
     Dosage: 100 MG, QD
     Route: 048
  7. SOTALOL HCL [Concomitant]
     Indication: CARDIAC PACEMAKER INSERTION
     Dosage: 80 MG, BID

REACTIONS (8)
  - BLOOD POTASSIUM INCREASED [None]
  - HAEMATOCRIT DECREASED [None]
  - HAEMOGLOBIN DECREASED [None]
  - MALIGNANT NEOPLASM PROGRESSION [None]
  - NAUSEA [None]
  - PLATELET COUNT INCREASED [None]
  - VOMITING [None]
  - WHITE BLOOD CELL COUNT INCREASED [None]
